FAERS Safety Report 8033700 (Version 4)
Quarter: 2013Q2

REPORT INFORMATION
  Report Type: Spontaneous
  Country: CA (occurrence: CA)
  Receive Date: 20110713
  Receipt Date: 20130528
  Transmission Date: 20140414
  Serious: Yes (Hospitalization)
  Sender: FDA-Public Use
  Company Number: CA-JNJFOC-20110702134

PATIENT
  Age: 59 Year
  Sex: Female
  Weight: 90.72 kg

DRUGS (2)
  1. SIMPONI [Suspect]
     Indication: PSORIATIC ARTHROPATHY
     Dosage: 0.5ML
     Route: 058
     Dates: start: 201106
  2. SIMPONI [Suspect]
     Indication: RHEUMATOID ARTHRITIS
     Dosage: 0.5ML
     Route: 058
     Dates: start: 201106

REACTIONS (4)
  - Arthralgia [Unknown]
  - Blood potassium decreased [Unknown]
  - Psoriatic arthropathy [Unknown]
  - Pyrexia [Unknown]
